FAERS Safety Report 4479864-1 (Version None)
Quarter: 2004Q4

REPORT INFORMATION
  Report Type: 
  Country: None (occurrence: None)
  Receive Date: 20041018
  Receipt Date: 20041006
  Transmission Date: 20050328
  Serious: Yes (Death)
  Sender: FDA-Public Use
  Company Number: 2004-10-0218

PATIENT
  Age: 53 Year
  Sex: Male

DRUGS (2)
  1. CELESTONE [Suspect]
     Indication: BRONCHITIS
     Dosage: 2MGX2 TABLETS ORAL
     Route: 048
     Dates: start: 20040424, end: 20040424
  2. ANTIBIOTIC FOR BRONCHITIS [Concomitant]

REACTIONS (2)
  - GASTRIC HAEMORRHAGE [None]
  - GASTRIC ULCER PERFORATION [None]
